FAERS Safety Report 6523641-4 (Version None)
Quarter: 2009Q4

REPORT INFORMATION
  Report Type: 
  Country: None (occurrence: None)
  Receive Date: 20091231
  Receipt Date: 20091222
  Transmission Date: 20100525
  Serious: Yes (Death, Hospitalization, Other)
  Sender: FDA-Public Use
  Company Number: GR-BAYER-200932550GPV

PATIENT
  Age: 61 Year
  Sex: Female

DRUGS (4)
  1. NEXAVAR [Suspect]
     Indication: HEPATIC NEOPLASM MALIGNANT
     Dosage: WEEK 10
     Route: 048
     Dates: start: 20090707, end: 20090916
  2. ZOMETA [Concomitant]
     Indication: METASTASES TO BONE
     Dosage: 4 MG/21 DAYS
     Route: 042
     Dates: start: 20080507, end: 20090825
  3. VENOFER [Concomitant]
     Indication: ANAEMIA
     Dosage: 100 MG/21 DAYS
     Route: 042
     Dates: start: 20090617, end: 20090825
  4. LASIX [Concomitant]
     Indication: PLEURAL EFFUSION
     Route: 048
     Dates: start: 20090917

REACTIONS (5)
  - DYSPNOEA [None]
  - HEPATIC NEOPLASM MALIGNANT [None]
  - MALIGNANT NEOPLASM PROGRESSION [None]
  - PLEURAL EFFUSION [None]
  - PYREXIA [None]
